FAERS Safety Report 5079458-3 (Version None)
Quarter: 2006Q3

REPORT INFORMATION
  Report Type: 
  Country: None (occurrence: None)
  Receive Date: 20060814
  Receipt Date: 20060805
  Transmission Date: 20061208
  Serious: Yes (Other)
  Sender: FDA-Public Use
  Company Number: US-ROCHE-458591

PATIENT
  Sex: Female

DRUGS (3)
  1. PEGASYS [Suspect]
     Indication: DRUG USE FOR UNKNOWN INDICATION
     Dosage: ROUTE REPORTED AS INJ.
     Route: 050
     Dates: start: 20060728
  2. RIBAVIRIN [Suspect]
     Route: 048
     Dates: start: 20060728
  3. ANTIHYPERTENSIVE DRUG NOS [Suspect]
     Indication: HYPERTENSION
     Route: 065

REACTIONS (2)
  - DIZZINESS [None]
  - HYPOTENSION [None]
